FAERS Safety Report 8069551-5 (Version None)
Quarter: 2011Q4

REPORT INFORMATION
  Report Type: 
  Country: None (occurrence: None)
  Receive Date: 20111221
  Receipt Date: 20070313
  Transmission Date: 20120403
  Serious: Yes (Other)
  Sender: FDA-Public Use
  Company Number: PHEH2006US11287

PATIENT
  Age: 17 Year
  Sex: Male

DRUGS (2)
  1. EXJADE [Suspect]
     Indication: IRON OVERLOAD
     Dosage: 1500 MG, QD, ORAL, 1000 MG, QD, ORAL
     Route: 048
     Dates: start: 20060301
  2. CLARITIN [Concomitant]

REACTIONS (7)
  - HEPATIC STEATOSIS [None]
  - HEPATIC FIBROSIS [None]
  - ASPARTATE AMINOTRANSFERASE INCREASED [None]
  - GAMMA-GLUTAMYLTRANSFERASE INCREASED [None]
  - INFLAMMATION [None]
  - HEPATITIS [None]
  - BLOOD BILIRUBIN INCREASED [None]
